FAERS Safety Report 7379075-6 (Version None)
Quarter: 2011Q1

REPORT INFORMATION
  Report Type: 
  Country: None (occurrence: None)
  Receive Date: 20110328
  Receipt Date: 20110315
  Transmission Date: 20110831
  Serious: Yes (Hospitalization)
  Sender: FDA-Public Use
  Company Number: US-ELI_LILLY_AND_COMPANY-US201010002100

PATIENT
  Sex: Female

DRUGS (7)
  1. LIPITOR [Concomitant]
     Dosage: 10 MG, EACH EVENING
  2. FORTEO [Suspect]
     Indication: OSTEOPOROSIS
     Dosage: 20 UG, DAILY (1/D)
     Route: 058
     Dates: start: 20100801
  3. SYNTHROID [Concomitant]
  4. EYE DROPS [Concomitant]
  5. FORTEO [Suspect]
     Dosage: 20 UG, DAILY (1/D)
     Route: 058
     Dates: start: 20101201
  6. COUMADIN [Concomitant]
  7. NEXIUM [Concomitant]

REACTIONS (12)
  - PAIN IN EXTREMITY [None]
  - MUSCLE TWITCHING [None]
  - CONTUSION [None]
  - MYALGIA [None]
  - RESTLESS LEGS SYNDROME [None]
  - BACK INJURY [None]
  - DYSKINESIA [None]
  - TREMOR [None]
  - PAIN [None]
  - ARTHRALGIA [None]
  - CHONDROCALCINOSIS PYROPHOSPHATE [None]
  - FALL [None]
